FAERS Safety Report 19024823 (Version 1)
Quarter: 2021Q1

REPORT INFORMATION
  Report Type: Spontaneous
  Country: GB (occurrence: GB)
  Receive Date: 20210318
  Receipt Date: 20210318
  Transmission Date: 20210420
  Serious: Yes (Disabling)
  Sender: FDA-Public Use
  Company Number: GB-TEVA-2021-GB-1876934

PATIENT
  Age: 75 Year
  Sex: Male
  Weight: 71 kg

DRUGS (5)
  1. TAMSULOSIN [Concomitant]
     Active Substance: TAMSULOSIN
  2. GLARGINE INSULIN [Concomitant]
     Active Substance: INSULIN GLARGINE
  3. HUMALOG [Concomitant]
     Active Substance: INSULIN LISPRO
  4. SOLIFENACIN SUCCINATE. [Suspect]
     Active Substance: SOLIFENACIN SUCCINATE
     Indication: MICTURITION URGENCY
     Dosage: 5 MILLIGRAM DAILY;
     Route: 048
     Dates: start: 20200120, end: 20210130
  5. AMLODIPIN [Concomitant]
     Active Substance: AMLODIPINE BESYLATE

REACTIONS (1)
  - Blood glucose fluctuation [Recovering/Resolving]

NARRATIVE: CASE EVENT DATE: 20201229
